FAERS Safety Report 19410726 (Version 1)
Quarter: 2021Q2

REPORT INFORMATION
  Report Type: Spontaneous
  Country: US (occurrence: US)
  Receive Date: 20210614
  Receipt Date: 20210614
  Transmission Date: 20210717
  Serious: Yes (Other)
  Sender: FDA-Public Use
  Company Number: NVSC2021US128103

PATIENT
  Age: 59 Year
  Sex: Female

DRUGS (1)
  1. CAFFEINE,ERGOTAMINE TARTRATE [Suspect]
     Active Substance: CAFFEINE\ERGOTAMINE TARTRATE
     Indication: MIGRAINE
     Dosage: UNK UNK, QD (5 DOSES)
     Route: 065

REACTIONS (2)
  - Ergot poisoning [Recovered/Resolved]
  - Incorrect dose administered [Unknown]
